FAERS Safety Report 6907043-4 (Version None)
Quarter: 2010Q3

REPORT INFORMATION
  Report Type: 
  Country: None (occurrence: None)
  Receive Date: 20100804
  Receipt Date: 20080721
  Transmission Date: 20110219
  Serious: No
  Sender: FDA-Public Use
  Company Number: US-PFIZER INC-2008061485

PATIENT
  Sex: Male
  Weight: 74.8 kg

DRUGS (3)
  1. SELZENTRY [Suspect]
     Indication: HIV INFECTION
     Dates: start: 20080101
  2. EPIVIR [Concomitant]
  3. CRIXIVAN [Concomitant]

REACTIONS (7)
  - ABDOMINAL DISTENSION [None]
  - DIZZINESS [None]
  - FEELING DRUNK [None]
  - HEPATIC FUNCTION ABNORMAL [None]
  - HEPATIC PAIN [None]
  - NEUROPATHY PERIPHERAL [None]
  - WRONG TECHNIQUE IN DRUG USAGE PROCESS [None]
